FAERS Safety Report 17856586 (Version 1)
Quarter: 2020Q2

REPORT INFORMATION
  Report Type: Spontaneous
  Country: US (occurrence: US)
  Receive Date: 20200603
  Receipt Date: 20200603
  Transmission Date: 20200714
  Serious: No
  Sender: FDA-Public Use
  Company Number: US-ENDO PHARMACEUTICALS INC-2019-105966

PATIENT

DRUGS (1)
  1. VASOSTRICT [Suspect]
     Active Substance: VASOPRESSIN
     Indication: PROCEDURAL HYPOTENSION
     Dosage: UNK
     Route: 065

REACTIONS (2)
  - Off label use [Unknown]
  - Hypotension [Unknown]
